FAERS Safety Report 21213335 (Version 1)
Quarter: 2022Q3

REPORT INFORMATION
  Report Type: Spontaneous
  Country: JP (occurrence: JP)
  Receive Date: 20220815
  Receipt Date: 20220815
  Transmission Date: 20221027
  Serious: No
  Sender: FDA-Public Use
  Company Number: JP-MSD-M2022-31936

PATIENT
  Age: 45 Year
  Sex: Male
  Weight: 68 kg

DRUGS (6)
  1. LAGEVRIO [Suspect]
     Active Substance: MOLNUPIRAVIR
     Indication: COVID-19 treatment
     Dosage: 200 MILLIGRAM, BID
     Route: 048
     Dates: start: 20220629, end: 20220630
  2. ACETAMINOPHEN\CAFFEINE\PROMETHAZINE\SALICYLAMIDE [Suspect]
     Active Substance: ACETAMINOPHEN\CAFFEINE\PROMETHAZINE\SALICYLAMIDE
     Dosage: UNK
     Route: 065
     Dates: start: 20220629
  3. LOXOPROFEN SODIUM [Suspect]
     Active Substance: LOXOPROFEN SODIUM
     Dosage: UNK
     Route: 065
     Dates: start: 20220629
  4. METGLUCO [Concomitant]
     Active Substance: METFORMIN HYDROCHLORIDE
     Dosage: 250
     Route: 065
  5. AMLODIPINE BESYLATE [Concomitant]
     Active Substance: AMLODIPINE BESYLATE
     Dosage: 5
     Route: 065
  6. PEMAFIBRATE [Concomitant]
     Active Substance: PEMAFIBRATE
     Dosage: UNK
     Route: 065

REACTIONS (3)
  - Eczema [Unknown]
  - Product use issue [Unknown]
  - Underdose [Unknown]

NARRATIVE: CASE EVENT DATE: 20220629
